FAERS Safety Report 7295741-5 (Version None)
Quarter: 2011Q1

REPORT INFORMATION
  Report Type: 
  Country: None (occurrence: None)
  Receive Date: 20110216
  Receipt Date: 20101223
  Transmission Date: 20110831
  Serious: No
  Sender: FDA-Public Use
  Company Number: US-ABBOTT-10P-163-0693412-00

PATIENT
  Sex: Male
  Weight: 102.15 kg

DRUGS (2)
  1. ATENOLOL [Concomitant]
     Indication: PRODUCT USED FOR UNKNOWN INDICATION
  2. SIMCOR [Suspect]
     Indication: BLOOD TRIGLYCERIDES INCREASED
     Dosage: 1000/20MG AT BEDTIME
     Dates: start: 20101202

REACTIONS (2)
  - FEELING HOT [None]
  - PARAESTHESIA [None]
